FAERS Safety Report 6432213-1 (Version None)
Quarter: 2009Q4

REPORT INFORMATION
  Report Type: 
  Country: None (occurrence: None)
  Receive Date: 20091109
  Receipt Date: 20091103
  Transmission Date: 20100525
  Serious: Yes (Other)
  Sender: FDA-Public Use
  Company Number: FR-BRISTOL-MYERS SQUIBB COMPANY-14845861

PATIENT

DRUGS (2)
  1. REYATAZ [Suspect]
  2. ISENTRESS [Suspect]

REACTIONS (1)
  - LIPODYSTROPHY ACQUIRED [None]
